FAERS Safety Report 16827101 (Version 1)
Quarter: 2019Q3

REPORT INFORMATION
  Report Type: Spontaneous
  Country: US (occurrence: US)
  Receive Date: 20190729
  Receipt Date: 20190729
  Transmission Date: 20191005
  Serious: Yes (Hospitalization)
  Sender: FDA-Public Use
  Company Number: None

PATIENT
  Age: 83 Year
  Sex: Male

DRUGS (6)
  1. CARVEDIOL TAB [Concomitant]
  2. ALPRAZOLAM TAB [Concomitant]
  3. SPIRONOLACT TAB [Concomitant]
  4. ADCIRCA [Suspect]
     Active Substance: TADALAFIL
     Indication: PULMONARY ARTERIAL HYPERTENSION
     Dosage: ?          OTHER DOSE:2 TABS;?
     Route: 048
     Dates: start: 20181030
  5. ASPIRIN LOW TAB [Concomitant]
  6. SIMVASTATIN TAB [Concomitant]
     Active Substance: SIMVASTATIN

REACTIONS (2)
  - Pneumonia [None]
  - Cardiac failure congestive [None]

NARRATIVE: CASE EVENT DATE: 20190419
